FAERS Safety Report 7677395-9 (Version None)
Quarter: 2011Q3

REPORT INFORMATION
  Report Type: 
  Country: None (occurrence: None)
  Receive Date: 20110811
  Receipt Date: 20110804
  Transmission Date: 20111222
  Serious: Yes (Hospitalization)
  Sender: FDA-Public Use
  Company Number: US-US-EMD SERONO, INC.-7074960

PATIENT
  Sex: Male

DRUGS (2)
  1. REBIF [Suspect]
     Indication: MULTIPLE SCLEROSIS
     Dates: start: 20060126, end: 20090113
  2. REBIF [Suspect]
     Route: 058
     Dates: start: 20090818

REACTIONS (3)
  - URINARY TRACT INFECTION [None]
  - URINARY RETENTION [None]
  - GALLBLADDER DISORDER [None]
